FAERS Safety Report 8138864-0 (Version None)
Quarter: 2012Q1

REPORT INFORMATION
  Report Type: 
  Country: None (occurrence: None)
  Receive Date: 20120215
  Receipt Date: 20120208
  Transmission Date: 20120608
  Serious: Yes (Other)
  Sender: FDA-Public Use
  Company Number: JP-ROCHE-750549

PATIENT
  Age: 61 Year
  Sex: Female

DRUGS (11)
  1. OXALIPLATIN [Concomitant]
     Dosage: NOTE: DOSAGE IS UNCERTAIN
     Route: 041
  2. AVASTIN [Suspect]
     Indication: RECTAL CANCER RECURRENT
     Dosage: NOTE: DOSAGE IS UNCERTAIN
     Route: 041
  3. ERBITUX [Suspect]
     Indication: COLON CANCER METASTATIC
     Route: 041
  4. FLUOROURACIL [Concomitant]
     Dosage: ROUTE INTRAVENOUS BOLUS, NOTE: DOSAGE IS UNCERTAIN
     Route: 042
  5. FLUOROURACIL [Concomitant]
     Dosage: ROUTE INTRAVENOUS DRIP, NOTE: DOSAGE IS UNCERTAIN
     Route: 042
  6. LEVOLEUCOVORIN CALCIUM [Concomitant]
     Dosage: ROUTE INTRAVENOUS DRIP, NOTE: DOSAGE IS UNCERTAIN
     Route: 041
  7. FLUOROURACIL [Concomitant]
     Dosage: ROUTE INTRAVENOUS BOLUS, NOTE: DOSAGE IS UNCERTAIN
     Route: 042
  8. FLUOROURACIL [Concomitant]
     Dosage: ROUTE INTRAARTERIAL
     Route: 042
  9. LEVOLEUCOVORIN CALCIUM [Concomitant]
     Dosage: ROUTE INTRAVENOUS DRIP, DOSE IS UNCERTAIN
     Route: 041
  10. TEMOZOLOMIDE [Concomitant]
     Dosage: NOTE: DOSAGE IS UNCERTAIN
     Route: 041
  11. FLUOROURACIL [Concomitant]
     Dosage: ROUTE INTRAVENOUS DRIP, NOTE: DOSAGE IS UNCERTAIN
     Route: 042

REACTIONS (4)
  - DERMATITIS ACNEIFORM [None]
  - CHOLANGITIS [None]
  - ANAEMIA [None]
  - MALAISE [None]
